FAERS Safety Report 7501996-1 (Version None)
Quarter: 2011Q2

REPORT INFORMATION
  Report Type: 
  Country: None (occurrence: None)
  Receive Date: 20110517
  Receipt Date: 20110504
  Transmission Date: 20111010
  Serious: Yes (Other)
  Sender: FDA-Public Use
  Company Number: DSJ-2011-08771

PATIENT
  Age: 64 Year
  Sex: Female

DRUGS (2)
  1. BENICAR [Suspect]
     Indication: HYPERTENSION
     Dosage: 20 MG (20 MG,1 IN 1 D),PER ORAL
     Route: 048
     Dates: start: 20110301
  2. CLONAZEPAM [Concomitant]

REACTIONS (4)
  - HEADACHE [None]
  - VIRAL INFECTION [None]
  - NAUSEA [None]
  - ABDOMINAL PAIN [None]
